FAERS Safety Report 24127988 (Version 2)
Quarter: 2024Q3

REPORT INFORMATION
  Report Type: Spontaneous
  Country: US (occurrence: US)
  Receive Date: 20240723
  Receipt Date: 20240726
  Transmission Date: 20241017
  Serious: Yes (Other)
  Sender: GRIFOLS
  Company Number: US-IGSA-BIG0029950

PATIENT
  Sex: Male

DRUGS (3)
  1. HUMAN IMMUNOGLOBULIN G [Suspect]
     Active Substance: HUMAN IMMUNOGLOBULIN G
     Indication: Immune thrombocytopenia
     Dosage: UNK
     Route: 042
  2. TAVALISSE [Concomitant]
     Active Substance: FOSTAMATINIB
     Indication: Immune thrombocytopenia
     Dosage: 150 MILLIGRAM, QD
     Route: 048
  3. TAVALISSE [Concomitant]
     Active Substance: FOSTAMATINIB
     Dosage: 100 MILLIGRAM, QD
     Route: 048

REACTIONS (2)
  - Renal injury [Unknown]
  - Platelet count increased [Unknown]
